FAERS Safety Report 8770071 (Version 1)
Quarter: 2012Q4

REPORT INFORMATION
  Report Type: 
  Country: US (occurrence: US)
  Receive Date: 20120906
  Receipt Date: 20120906
  Transmission Date: 20130627
  Serious: Yes (Other)
  Sender: FDA-Public Use
  Company Number: US-ASTRAZENECA-2011SE49537

PATIENT
  Age: 87 Year
  Sex: Male

DRUGS (1)
  1. TOPROL XL [Suspect]
     Route: 048

REACTIONS (4)
  - Coronary artery occlusion [Unknown]
  - Cardiac disorder [Unknown]
  - Pain in extremity [Unknown]
  - Dyspnoea [Unknown]
